FAERS Safety Report 24072752 (Version 3)
Quarter: 2024Q3

REPORT INFORMATION
  Report Type: Spontaneous
  Country: US (occurrence: US)
  Receive Date: 20240710
  Receipt Date: 20240808
  Transmission Date: 20241016
  Serious: No
  Sender: ROCHE
  Company Number: US-ROCHE-10000019017

PATIENT
  Age: 41 Year
  Sex: Female
  Weight: 80.74 kg

DRUGS (1)
  1. OCREVUS [Suspect]
     Active Substance: OCRELIZUMAB
     Indication: Relapsing-remitting multiple sclerosis
     Route: 042
     Dates: start: 20231129

REACTIONS (7)
  - Blood test abnormal [Unknown]
  - Fall [Unknown]
  - Malaise [Unknown]
  - Contusion [Not Recovered/Not Resolved]
  - Band sensation [Not Recovered/Not Resolved]
  - Off label use [Unknown]
  - Loss of consciousness [Unknown]

NARRATIVE: CASE EVENT DATE: 20240529
